FAERS Safety Report 8825911 (Version 1)
Quarter: 2012Q4

REPORT INFORMATION
  Report Type: 
  Country: RO (occurrence: RO)
  Receive Date: 20121005
  Receipt Date: 20121005
  Transmission Date: 20130627
  Serious: Yes (Other)
  Sender: FDA-Public Use
  Company Number: RO-ROCHE-1141225

PATIENT
  Age: 70 Year
  Sex: Male

DRUGS (2)
  1. ROFERON-A [Suspect]
     Indication: RENAL CANCER
     Route: 065
     Dates: start: 20111001
  2. AVASTIN [Concomitant]
     Indication: RENAL CANCER
     Route: 065
     Dates: start: 20120501

REACTIONS (4)
  - Metastases to lung [Not Recovered/Not Resolved]
  - Metastases to bone [Not Recovered/Not Resolved]
  - Myalgia [Unknown]
  - Headache [Unknown]
